FAERS Safety Report 14067701 (Version 1)
Quarter: 2017Q4

REPORT INFORMATION
  Report Type: Report from Study
  Country: None (occurrence: DE)
  Receive Date: 20171010
  Receipt Date: 20171010
  Transmission Date: 20180321
  Serious: Yes (Other)
  Sender: FDA-Public Use
  Company Number: DE-ABBVIE-17K-062-2080368-00

PATIENT
  Age: 24 Year
  Sex: Female
  Weight: 47 kg

DRUGS (3)
  1. CORTISONE [Concomitant]
     Active Substance: CORTISONE\HYDROCORTISONE
     Indication: PRODUCT USED FOR UNKNOWN INDICATION
  2. AZATHIOPRIN [Concomitant]
     Active Substance: AZATHIOPRINE
     Indication: PRODUCT USED FOR UNKNOWN INDICATION
  3. HUMIRA [Suspect]
     Active Substance: ADALIMUMAB
     Indication: CROHN^S DISEASE
     Route: 058
     Dates: start: 20170710, end: 20170821

REACTIONS (4)
  - Dermatitis allergic [Recovered/Resolved]
  - Pruritus allergic [Recovered/Resolved]
  - Anaphylactic shock [Recovered/Resolved]
  - Allergic oedema [Recovering/Resolving]

NARRATIVE: CASE EVENT DATE: 20170821
